FAERS Safety Report 14784825 (Version 2)
Quarter: 2018Q2

REPORT INFORMATION
  Report Type: Spontaneous
  Country: MY (occurrence: MY)
  Receive Date: 20180420
  Receipt Date: 20180516
  Transmission Date: 20180711
  Serious: Yes (Death, Other)
  Sender: FDA-Public Use
  Company Number: MY-PFIZER INC-2018159641

PATIENT
  Age: 59 Year
  Sex: Male

DRUGS (6)
  1. CLOXACILLIN [Suspect]
     Active Substance: CLOXACILLIN
     Indication: TOXIC SHOCK SYNDROME STAPHYLOCOCCAL
     Dosage: UNK
     Route: 042
  2. IMIPENEM [Suspect]
     Active Substance: IMIPENEM
     Indication: TOXIC SHOCK SYNDROME STAPHYLOCOCCAL
  3. ETORICOXIB [Concomitant]
     Active Substance: ETORICOXIB
     Indication: MUSCULOSKELETAL PAIN
     Dosage: 90 MG, DAILY (AT 3 DAYS BEFORE THE ADMISSION)
  4. DOXYCYCLINE. [Suspect]
     Active Substance: DOXYCYCLINE
     Indication: TOXIC SHOCK SYNDROME STAPHYLOCOCCAL
     Dosage: UNK
  5. CLINDAMYCIN PHOSPHATE. [Suspect]
     Active Substance: CLINDAMYCIN PHOSPHATE
     Indication: TOXIC SHOCK SYNDROME STREPTOCOCCAL
     Dosage: UNK
     Route: 042
  6. IMMUNOGLOBULIN HUMAN NORMAL [Suspect]
     Active Substance: HUMAN IMMUNOGLOBULIN G
     Indication: TOXIC SHOCK SYNDROME STREPTOCOCCAL
     Dosage: UNK
     Route: 042

REACTIONS (1)
  - No adverse event [Fatal]
